FAERS Safety Report 8583764-5 (Version None)
Quarter: 2012Q3

REPORT INFORMATION
  Report Type: 
  Country: None (occurrence: None)
  Receive Date: 20120810
  Receipt Date: 20120726
  Transmission Date: 20120928
  Serious: Yes (Hospitalization)
  Sender: FDA-Public Use
  Company Number: FR-009507513-1207FRA011143

PATIENT

DRUGS (2)
  1. NOROXIN [Suspect]
     Dosage: 2 DF, QD
     Dates: start: 20120626
  2. ZESTORETIC [Concomitant]
     Indication: HYPERTENSION

REACTIONS (1)
  - PEMPHIGOID [None]
